FAERS Safety Report 5068278-1 (Version None)
Quarter: 2006Q3

REPORT INFORMATION
  Report Type: 
  Country: None (occurrence: None)
  Receive Date: 20060802
  Receipt Date: 20050711
  Transmission Date: 20061208
  Serious: No
  Sender: FDA-Public Use
  Company Number: US-BRISTOL-MYERS SQUIBB COMPANY-13032412

PATIENT
  Age: 64 Year
  Sex: Female
  Weight: 61 kg

DRUGS (9)
  1. COUMADIN [Suspect]
     Indication: ATRIAL FIBRILLATION
  2. LISINOPRIL [Concomitant]
  3. ATENOLOL [Concomitant]
  4. CO-Q-10 [Concomitant]
  5. ESTER-C [Concomitant]
  6. VITAMIN A [Concomitant]
  7. VITAMIN D [Concomitant]
  8. VITAMIN B COMPLEX CAP [Concomitant]
  9. CALCIUM + MAGNESIUM [Concomitant]

REACTIONS (1)
  - ALOPECIA [None]
